FAERS Safety Report 5105655-4 (Version None)
Quarter: 2006Q3

REPORT INFORMATION
  Report Type: 
  Country: None (occurrence: None)
  Receive Date: 20060915
  Receipt Date: 20060810
  Transmission Date: 20061208
  Serious: Yes (Hospitalization)
  Sender: FDA-Public Use
  Company Number: DE-AVENTIS-200614421EU

PATIENT
  Age: 49 Year
  Sex: Male

DRUGS (3)
  1. FUROSEMIDE [Suspect]
     Indication: HYPERTENSION
  2. FUROSEMIDE [Suspect]
  3. CAPTOPRIL [Concomitant]
     Indication: HYPERTENSION

REACTIONS (12)
  - ANAEMIA [None]
  - BOWEL MOVEMENT IRREGULARITY [None]
  - COLITIS ISCHAEMIC [None]
  - COLITIS ULCERATIVE [None]
  - COLON NEOPLASM [None]
  - COLONIC STENOSIS [None]
  - CONSTIPATION [None]
  - DIARRHOEA [None]
  - DIZZINESS [None]
  - GASTROINTESTINAL HAEMORRHAGE [None]
  - INCORRECT DOSE ADMINISTERED [None]
  - WEIGHT DECREASED [None]
